FAERS Safety Report 5778055-1 (Version None)
Quarter: 2008Q2

REPORT INFORMATION
  Report Type: 
  Country: None (occurrence: None)
  Receive Date: 20080617
  Receipt Date: 20080617
  Transmission Date: 20081010
  Serious: Yes (Hospitalization)
  Sender: FDA-Public Use
  Company Number: None

PATIENT
  Sex: Female
  Weight: 82.1011 kg

DRUGS (5)
  1. TRILEPTAL [Suspect]
     Indication: SCHIZOAFFECTIVE DISORDER
     Dosage: 200 MG EVERY NIGHT PO
     Route: 048
     Dates: start: 20070528, end: 20080528
  2. SEROQUEL [Concomitant]
  3. CLONAZEPAM [Concomitant]
  4. AMBIEN [Concomitant]
  5. HYDROXY PAM [Concomitant]

REACTIONS (2)
  - HYPONATRAEMIA [None]
  - WEIGHT DECREASED [None]
